FAERS Safety Report 5756380-8 (Version None)
Quarter: 2008Q2

REPORT INFORMATION
  Report Type: 
  Country: None (occurrence: None)
  Receive Date: 20080529
  Receipt Date: 20080516
  Transmission Date: 20081010
  Serious: Yes (Hospitalization, Other)
  Sender: FDA-Public Use
  Company Number: 2008S1006929

PATIENT
  Age: 15 Year
  Sex: Male
  Weight: 49.5 kg

DRUGS (5)
  1. ISOTRETINOIN [Suspect]
     Indication: ACNE
     Dosage: 40 MG;DAILY;ORAL
     Route: 048
     Dates: start: 20071030, end: 20080204
  2. ISOTRETINOIN [Suspect]
     Indication: ACNE
     Dosage: 20 MG;EVERY OTHER DAY; ORAL
     Route: 048
     Dates: start: 20071030, end: 20080204
  3. STRATTERA [Suspect]
     Indication: ATTENTION DEFICIT/HYPERACTIVITY DISORDER
     Dosage: ORAL
     Route: 048
  4. BACTRIM [Concomitant]
  5. VITAMIN CAP [Concomitant]

REACTIONS (6)
  - DEPRESSION [None]
  - FLAT AFFECT [None]
  - HALLUCINATION [None]
  - NIGHTMARE [None]
  - SELF-INJURIOUS IDEATION [None]
  - SUICIDAL IDEATION [None]
